FAERS Safety Report 7725788-3 (Version None)
Quarter: 2011Q3

REPORT INFORMATION
  Report Type: 
  Country: None (occurrence: None)
  Receive Date: 20110902
  Receipt Date: 20110831
  Transmission Date: 20111222
  Serious: Yes (Death, Hospitalization)
  Sender: FDA-Public Use
  Company Number: US-AMGEN-USASP2011041103

PATIENT
  Age: 63 Year
  Sex: Female
  Weight: 68.481 kg

DRUGS (1)
  1. NPLATE [Suspect]
     Indication: IDIOPATHIC THROMBOCYTOPENIC PURPURA
     Dosage: 60 MUG, QWK
     Route: 058
     Dates: start: 20110318, end: 20110408

REACTIONS (3)
  - CARDIAC ARREST [None]
  - HAEMORRHAGE INTRACRANIAL [None]
  - UPPER GASTROINTESTINAL HAEMORRHAGE [None]
